FAERS Safety Report 12218146 (Version 1)
Quarter: 2016Q1

REPORT INFORMATION
  Report Type: Spontaneous
  Country: HR (occurrence: HR)
  Receive Date: 20160329
  Receipt Date: 20160329
  Transmission Date: 20160526
  Serious: Yes (Other)
  Sender: FDA-Public Use
  Company Number: HR-JNJFOC-20160323587

PATIENT
  Sex: Male

DRUGS (1)
  1. RISPERDAL CONSTA [Suspect]
     Active Substance: RISPERIDONE
     Indication: PRODUCT USED FOR UNKNOWN INDICATION
     Route: 030

REACTIONS (11)
  - Abdominal pain upper [Unknown]
  - Urine output increased [Unknown]
  - Muscle spasms [Unknown]
  - Hangover [Unknown]
  - Visual impairment [Unknown]
  - Angina pectoris [Unknown]
  - Scratch [Unknown]
  - Headache [Unknown]
  - Inappropriate affect [Unknown]
  - Gait disturbance [Unknown]
  - Formication [Unknown]

NARRATIVE: CASE EVENT DATE: 2016
